FAERS Safety Report 5627454-7 (Version None)
Quarter: 2008Q1

REPORT INFORMATION
  Report Type: 
  Country: None (occurrence: None)
  Receive Date: 20080214
  Receipt Date: 20080214
  Transmission Date: 20080703
  Serious: Yes (Life-Threatening, Disabling, Other)
  Sender: FDA-Public Use
  Company Number: None

PATIENT
  Age: 46 Year
  Sex: Female
  Weight: 54.4316 kg

DRUGS (2)
  1. REMICADE [Suspect]
     Indication: CROHN'S DISEASE
     Dosage: 300 MG 4HOURS IV DRIP
     Route: 041
     Dates: start: 20060420, end: 20060420
  2. REMICADE [Suspect]
     Indication: CROHN'S DISEASE
     Dosage: 300 MG 4HOURS IV DRIP
     Route: 041
     Dates: start: 20060504, end: 20060504

REACTIONS (9)
  - APHASIA [None]
  - APNOEA [None]
  - COLOSTOMY [None]
  - DYSPNOEA [None]
  - ERYTHEMA [None]
  - ILL-DEFINED DISORDER [None]
  - MYOCARDIAL INFARCTION [None]
  - NIGHTMARE [None]
  - SUICIDE ATTEMPT [None]
